FAERS Safety Report 8231559-4 (Version None)
Quarter: 2012Q1

REPORT INFORMATION
  Report Type: 
  Country: None (occurrence: None)
  Receive Date: 20120323
  Receipt Date: 20120320
  Transmission Date: 20120608
  Serious: Yes (Death, Hospitalization)
  Sender: FDA-Public Use
  Company Number: PHHY2012EC024835

PATIENT
  Sex: Female

DRUGS (1)
  1. DIOVAN [Suspect]
     Indication: HYPERTENSION
     Dosage: 1 DF (80-160 MG), DAILY
     Route: 048
     Dates: start: 20040101, end: 20110801

REACTIONS (4)
  - DEATH [None]
  - MALIGNANT MESENTERIC NEOPLASM [None]
  - ABDOMINAL PAIN [None]
  - WEIGHT DECREASED [None]
